FAERS Safety Report 25946107 (Version 1)
Quarter: 2025Q4

REPORT INFORMATION
  Report Type: Spontaneous
  Country: CN (occurrence: CN)
  Receive Date: 20251021
  Receipt Date: 20251021
  Transmission Date: 20260118
  Serious: Yes (Hospitalization)
  Sender: ABBVIE
  Company Number: CN-ABBVIE-6508141

PATIENT
  Age: 65 Year
  Sex: Female

DRUGS (4)
  1. VENCLEXTA [Suspect]
     Active Substance: VENETOCLAX
     Indication: Myeloid leukaemia
     Dosage: 100 MILLIGRAM
     Route: 048
     Dates: start: 20250910, end: 20250910
  2. VENCLEXTA [Suspect]
     Active Substance: VENETOCLAX
     Indication: Myeloid leukaemia
     Dosage: 400 MILLIGRAM
     Route: 048
     Dates: start: 20250912, end: 20250930
  3. VENCLEXTA [Suspect]
     Active Substance: VENETOCLAX
     Indication: Myeloid leukaemia
     Dosage: 200 MILLIGRAM
     Route: 048
     Dates: start: 20250911, end: 20250911
  4. AZACITIDINE [Suspect]
     Active Substance: AZACITIDINE
     Indication: Myeloid leukaemia
     Dosage: 100 MILLIGRAM
     Route: 058
     Dates: start: 20251010, end: 20251016

REACTIONS (3)
  - Myelosuppression [Recovering/Resolving]
  - White blood cell count decreased [Recovering/Resolving]
  - Neutrophil count decreased [Recovering/Resolving]

NARRATIVE: CASE EVENT DATE: 20250101
